FAERS Safety Report 11429644 (Version 1)
Quarter: 2015Q3

REPORT INFORMATION
  Report Type: Spontaneous
  Country: US (occurrence: US)
  Receive Date: 20150828
  Receipt Date: 20150828
  Transmission Date: 20151125
  Serious: No
  Sender: FDA-Public Use
  Company Number: US-ROCHE-1189775

PATIENT
  Sex: Male

DRUGS (4)
  1. COPEGUS [Suspect]
     Active Substance: RIBAVIRIN
     Indication: HEPATITIS C
     Dosage: IN DIVIDED DOSES 600/400 FOR INITIAL 12 WEEK LENGTH OF THERAPY
     Route: 048
     Dates: start: 20130203
  2. TESTOSTERONE. [Concomitant]
     Active Substance: TESTOSTERONE
  3. PEGASYS [Suspect]
     Active Substance: PEGINTERFERON ALFA-2A
     Indication: HEPATITIS C
     Dosage: FOR INITIAL 12 WEEK LENGTH OF THERAPY
     Route: 058
     Dates: start: 20130203
  4. TELAPREVIR [Suspect]
     Active Substance: TELAPREVIR
     Indication: HEPATITIS C
     Route: 065

REACTIONS (7)
  - Weight decreased [Unknown]
  - Rash erythematous [Unknown]
  - Dyspnoea [Unknown]
  - Abdominal pain upper [Unknown]
  - Decreased appetite [Unknown]
  - Pulmonary fibrosis [Unknown]
  - Nausea [Unknown]
